FAERS Safety Report 11717753 (Version 8)
Quarter: 2025Q3

REPORT INFORMATION
  Report Type: Report from Study
  Country: CA (occurrence: CA)
  Receive Date: 20151110
  Receipt Date: 20250828
  Transmission Date: 20251021
  Serious: Yes (Other)
  Sender: ROCHE
  Company Number: CA-ROCHE-1467459

PATIENT
  Age: 38 Year
  Sex: Female
  Weight: 75.75 kg

DRUGS (11)
  1. XOLAIR [Suspect]
     Active Substance: OMALIZUMAB
     Indication: Asthma
     Route: 058
     Dates: start: 20111219
  2. XOLAIR [Suspect]
     Active Substance: OMALIZUMAB
     Route: 058
     Dates: start: 20160315
  3. XOLAIR [Suspect]
     Active Substance: OMALIZUMAB
     Route: 058
     Dates: start: 20160329
  4. XOLAIR [Suspect]
     Active Substance: OMALIZUMAB
     Route: 058
     Dates: start: 20161019
  5. XOLAIR [Suspect]
     Active Substance: OMALIZUMAB
     Route: 058
     Dates: start: 20170908
  6. XOLAIR [Suspect]
     Active Substance: OMALIZUMAB
     Route: 058
  7. XOLAIR [Suspect]
     Active Substance: OMALIZUMAB
     Route: 058
     Dates: start: 20221019
  8. ADVAIR HFA [Concomitant]
     Active Substance: FLUTICASONE PROPIONATE\SALMETEROL XINAFOATE
     Indication: Product used for unknown indication
     Route: 065
  9. SINGULAIR [Concomitant]
     Active Substance: MONTELUKAST SODIUM
     Indication: Product used for unknown indication
     Route: 065
  10. VENTOLIN [Concomitant]
     Active Substance: ALBUTEROL SULFATE
     Indication: Product used for unknown indication
     Route: 065
  11. OMNARIS [Concomitant]
     Active Substance: CICLESONIDE
     Indication: Product used for unknown indication
     Route: 065

REACTIONS (17)
  - Wheezing [Unknown]
  - Pulmonary congestion [Unknown]
  - Weight increased [Unknown]
  - Dizziness [Unknown]
  - Weight decreased [Unknown]
  - Chills [Unknown]
  - Hypoglycaemia [Unknown]
  - Productive cough [Unknown]
  - Feeling abnormal [Unknown]
  - Dyspnoea [Unknown]
  - Nasopharyngitis [Unknown]
  - Cough [Unknown]
  - Influenza like illness [Unknown]
  - Blood iron decreased [Unknown]
  - Drug ineffective [Unknown]
  - Product use issue [Unknown]
  - Stress [Unknown]

NARRATIVE: CASE EVENT DATE: 20130224
